FAERS Safety Report 6818398-3 (Version None)
Quarter: 2010Q3

REPORT INFORMATION
  Report Type: 
  Country: None (occurrence: None)
  Receive Date: 20100706
  Receipt Date: 20071130
  Transmission Date: 20110219
  Serious: No
  Sender: FDA-Public Use
  Company Number: US-PFIZER INC-2007101753

PATIENT
  Sex: Female
  Weight: 54.5 kg

DRUGS (3)
  1. ZITHROMAX [Suspect]
     Indication: BRONCHITIS
     Route: 048
     Dates: start: 20071122, end: 20071126
  2. ANTI-ASTHMATICS [Concomitant]
     Indication: ASTHMA
  3. BUDESONIDE [Concomitant]
     Indication: ASTHMA

REACTIONS (2)
  - ABDOMINAL PAIN UPPER [None]
  - ECZEMA [None]
